FAERS Safety Report 11982882 (Version 1)
Quarter: 2016Q1

REPORT INFORMATION
  Report Type: Spontaneous
  Country: CA (occurrence: CA)
  Receive Date: 20160201
  Receipt Date: 20160201
  Transmission Date: 20160526
  Serious: Yes (Hospitalization)
  Sender: FDA-Public Use
  Company Number: CA-ASTELLAS-2016US003087

PATIENT
  Age: 8 Decade

DRUGS (1)
  1. MYRBETRIQ [Suspect]
     Active Substance: MIRABEGRON
     Indication: HYPERTONIC BLADDER
     Dosage: UNK, UNKNOWN FREQ.
     Route: 048

REACTIONS (3)
  - Platelet count decreased [Recovered/Resolved]
  - Swelling face [Recovered/Resolved]
  - Haemolysis [Recovered/Resolved]
